FAERS Safety Report 7022297-4 (Version None)
Quarter: 2010Q3

REPORT INFORMATION
  Report Type: 
  Country: None (occurrence: None)
  Receive Date: 20100930
  Receipt Date: 20100921
  Transmission Date: 20110219
  Serious: Yes (Hospitalization)
  Sender: FDA-Public Use
  Company Number: HU-ABBOTT-10P-076-0671215-00

PATIENT
  Sex: Male
  Weight: 64 kg

DRUGS (5)
  1. ZEMPLAR [Suspect]
     Indication: HYPERPARATHYROIDISM SECONDARY
     Dosage: 5UG/1ML/AMPULE, 3 AMPULES/DIALYSIS
     Route: 042
     Dates: start: 20100524, end: 20100723
  2. ROCALTROL [Concomitant]
     Indication: HYPERPARATHYROIDISM SECONDARY
     Route: 048
  3. CALCII CARBONICI [Concomitant]
     Indication: HYPERPARATHYROIDISM SECONDARY
     Route: 048
  4. KETOSTERIL [Concomitant]
     Indication: PRODUCT USED FOR UNKNOWN INDICATION
  5. CO-PRENESSA [Concomitant]
     Indication: HYPERTENSION
     Dosage: 4MG/1.25MG DAILY

REACTIONS (1)
  - CONFUSIONAL STATE [None]
